FAERS Safety Report 24409521 (Version 2)
Quarter: 2024Q4

REPORT INFORMATION
  Report Type: Spontaneous
  Country: US (occurrence: US)
  Receive Date: 20241008
  Receipt Date: 20241206
  Transmission Date: 20250115
  Serious: No
  Sender: ABBVIE
  Company Number: US-ABBVIE-5947145

PATIENT
  Age: 69 Year
  Sex: Female

DRUGS (2)
  1. RINVOQ [Suspect]
     Active Substance: UPADACITINIB
     Indication: Product used for unknown indication
     Route: 048
  2. RINVOQ [Suspect]
     Active Substance: UPADACITINIB
     Indication: Product used for unknown indication
     Dosage: FORM STRENGTH: 30 MG
     Route: 048

REACTIONS (9)
  - Nerve compression [Unknown]
  - Weight increased [Recovered/Resolved]
  - Neck pain [Unknown]
  - Skin disorder [Unknown]
  - Acne [Unknown]
  - Oral herpes [Unknown]
  - Herpes zoster [Unknown]
  - Seborrhoea [Unknown]
  - Oral herpes [Unknown]

NARRATIVE: CASE EVENT DATE: 20241001
